FAERS Safety Report 7677821-5 (Version None)
Quarter: 2011Q3

REPORT INFORMATION
  Report Type: 
  Country: None (occurrence: None)
  Receive Date: 20110811
  Receipt Date: 20110805
  Transmission Date: 20111222
  Serious: Yes (Hospitalization, Congenital Anomaly, Other)
  Sender: FDA-Public Use
  Company Number: US-TEVA-295710USA

PATIENT
  Sex: Male
  Weight: 3.178 kg

DRUGS (1)
  1. PARAGARD T 380A [Suspect]
     Route: 065

REACTIONS (5)
  - PNEUMONIA [None]
  - POLYHYDRAMNIOS [None]
  - SEPSIS [None]
  - RESPIRATORY DISTRESS [None]
  - UMBILICAL CORD AROUND NECK [None]
